FAERS Safety Report 6852715-3 (Version None)
Quarter: 2010Q3

REPORT INFORMATION
  Report Type: 
  Country: None (occurrence: None)
  Receive Date: 20100717
  Receipt Date: 20071117
  Transmission Date: 20110219
  Serious: No
  Sender: FDA-Public Use
  Company Number: US-PFIZER INC-2007099539

PATIENT
  Sex: Female
  Weight: 67.272 kg

DRUGS (10)
  1. CHANTIX [Suspect]
     Indication: SMOKING CESSATION THERAPY
     Route: 048
     Dates: start: 20070101
  2. MULTI-VITAMINS [Concomitant]
  3. VITAMIN D [Concomitant]
  4. FISH OIL [Concomitant]
  5. CYMBALTA [Concomitant]
  6. MONTELUKAST SODIUM [Concomitant]
  7. ZYRTEC [Concomitant]
  8. TOPROL-XL [Concomitant]
     Indication: BLOOD PRESSURE
  9. GLUCOSAMINE [Concomitant]
  10. CHONDROITIN [Concomitant]

REACTIONS (3)
  - ABDOMINAL PAIN UPPER [None]
  - DIZZINESS [None]
  - INCORRECT DOSE ADMINISTERED [None]
